FAERS Safety Report 25874120 (Version 1)
Quarter: 2025Q4

REPORT INFORMATION
  Report Type: Spontaneous
  Country: EU (occurrence: EU)
  Receive Date: 20251002
  Receipt Date: 20251002
  Transmission Date: 20260117
  Serious: Yes (Other)
  Sender: BAYER HEALTHCARE PHARMACEUTICALS INC.
  Company Number: None

PATIENT
  Age: 33 Year
  Sex: Female
  Weight: 66 kg

DRUGS (13)
  1. GADOBUTROL [Suspect]
     Active Substance: GADOBUTROL
     Indication: Arteriogram carotid
     Dosage: 7 ML, ONCE
     Route: 042
     Dates: start: 20220322, end: 20220322
  2. GADOBUTROL [Suspect]
     Active Substance: GADOBUTROL
     Indication: Vertebrobasilar artery dissection
  3. DOTAREM [Suspect]
     Active Substance: GADOTERATE MEGLUMINE
     Indication: Arteriogram carotid
     Route: 042
     Dates: start: 20220603
  4. DOTAREM [Suspect]
     Active Substance: GADOTERATE MEGLUMINE
     Indication: Angiogram
  5. DOTAREM [Suspect]
     Active Substance: GADOTERATE MEGLUMINE
     Indication: Cerebral infarction
  6. DOTAREM [Suspect]
     Active Substance: GADOTERATE MEGLUMINE
     Indication: Nausea
  7. DOTAREM [Suspect]
     Active Substance: GADOTERATE MEGLUMINE
     Indication: Dizziness
  8. DOTAREM [Suspect]
     Active Substance: GADOTERATE MEGLUMINE
     Indication: Magnetic resonance imaging neck
     Dosage: BEI 65 KG CA. 13 ML
     Route: 042
     Dates: start: 20220921
  9. DOTAREM [Suspect]
     Active Substance: GADOTERATE MEGLUMINE
     Indication: Post procedural complication
  10. DOTAREM [Suspect]
     Active Substance: GADOTERATE MEGLUMINE
     Indication: Neurolysis
  11. DOTAREM [Suspect]
     Active Substance: GADOTERATE MEGLUMINE
     Indication: Neuropathy peripheral
  12. CLARISCAN [Suspect]
     Active Substance: GADOTERATE MEGLUMINE
     Indication: Magnetic resonance imaging head
     Dosage: 0,5MMOL/ML JE NACH K?RPERGEWICHT (65KG)
     Route: 042
     Dates: start: 20240110
  13. CLARISCAN [Suspect]
     Active Substance: GADOTERATE MEGLUMINE
     Indication: Headache

REACTIONS (68)
  - Sicca syndrome [Not Recovered/Not Resolved]
  - Neuropathy peripheral [Not Recovered/Not Resolved]
  - Urticaria [Not Recovered/Not Resolved]
  - Hyperhidrosis [Not Recovered/Not Resolved]
  - Dizziness [Not Recovered/Not Resolved]
  - Tachycardia [Not Recovered/Not Resolved]
  - Fatigue [Not Recovered/Not Resolved]
  - Diarrhoea [Not Recovered/Not Resolved]
  - Muscular weakness [Not Recovered/Not Resolved]
  - Brain fog [Not Recovered/Not Resolved]
  - Arthralgia [Not Recovered/Not Resolved]
  - Initial insomnia [Not Recovered/Not Resolved]
  - Mucosal irritation [Not Recovered/Not Resolved]
  - Bladder irritation [Not Recovered/Not Resolved]
  - Infection susceptibility increased [Not Recovered/Not Resolved]
  - Pain [Not Recovered/Not Resolved]
  - Somnolence [Not Recovered/Not Resolved]
  - Memory impairment [Not Recovered/Not Resolved]
  - Disturbance in attention [Not Recovered/Not Resolved]
  - Palpitations [Not Recovered/Not Resolved]
  - Feeling cold [Not Recovered/Not Resolved]
  - Peripheral coldness [Not Recovered/Not Resolved]
  - Somnolence [Not Recovered/Not Resolved]
  - Nausea [Not Recovered/Not Resolved]
  - Superficial vein prominence [Not Recovered/Not Resolved]
  - Skin mass [Not Recovered/Not Resolved]
  - Skin lesion [Not Recovered/Not Resolved]
  - Erythema [Not Recovered/Not Resolved]
  - Dry eye [Not Recovered/Not Resolved]
  - Visual impairment [Not Recovered/Not Resolved]
  - Lacrimation increased [Not Recovered/Not Resolved]
  - Photophobia [Not Recovered/Not Resolved]
  - Burning sensation mucosal [Not Recovered/Not Resolved]
  - Abdominal discomfort [Not Recovered/Not Resolved]
  - Myalgia [Not Recovered/Not Resolved]
  - Spinal pain [Not Recovered/Not Resolved]
  - Joint range of motion decreased [Not Recovered/Not Resolved]
  - Paraesthesia [Not Recovered/Not Resolved]
  - Pain in extremity [Not Recovered/Not Resolved]
  - Mobility decreased [Not Recovered/Not Resolved]
  - Tendon pain [Not Recovered/Not Resolved]
  - Rash [Not Recovered/Not Resolved]
  - Neuralgia [Not Recovered/Not Resolved]
  - Paraesthesia [Not Recovered/Not Resolved]
  - Flank pain [Not Recovered/Not Resolved]
  - Loss of personal independence in daily activities [Not Recovered/Not Resolved]
  - Aphasia [Not Recovered/Not Resolved]
  - Bradyphrenia [Not Recovered/Not Resolved]
  - Hyperacusis [Not Recovered/Not Resolved]
  - Poor quality sleep [Not Recovered/Not Resolved]
  - Balance disorder [Not Recovered/Not Resolved]
  - Arthralgia [Not Recovered/Not Resolved]
  - Neck pain [Not Recovered/Not Resolved]
  - Asthenia [Not Recovered/Not Resolved]
  - Skin discolouration [Not Recovered/Not Resolved]
  - Perihepatic discomfort [Not Recovered/Not Resolved]
  - Renal pain [Not Recovered/Not Resolved]
  - Tremor [Not Recovered/Not Resolved]
  - Restlessness [Not Recovered/Not Resolved]
  - Temperature intolerance [Not Recovered/Not Resolved]
  - Abdominal discomfort [Not Recovered/Not Resolved]
  - Sleep disorder [Not Recovered/Not Resolved]
  - Blood pressure fluctuation [Not Recovered/Not Resolved]
  - Heavy metal increased [Not Recovered/Not Resolved]
  - White blood cell count decreased [Not Recovered/Not Resolved]
  - Malnutrition [Not Recovered/Not Resolved]
  - Cortisol decreased [Not Recovered/Not Resolved]
  - Headache [Not Recovered/Not Resolved]

NARRATIVE: CASE EVENT DATE: 20220301
